FAERS Safety Report 9360866 (Version 1)
Quarter: 2013Q2

REPORT INFORMATION
  Report Type: Spontaneous
  Country: US (occurrence: None)
  Receive Date: 20130620
  Receipt Date: 20130620
  Transmission Date: 20140414
  Serious: No
  Sender: FDA-Public Use
  Company Number: None

PATIENT
  Age: 63 Year
  Sex: Male
  Weight: 117.2 kg

DRUGS (1)
  1. ALLOPURINOL [Suspect]
     Route: 048
     Dates: start: 20120531, end: 20130306

REACTIONS (1)
  - Rash erythematous [None]
